FAERS Safety Report 5258021-5 (Version None)
Quarter: 2007Q1

REPORT INFORMATION
  Report Type: 
  Country: None (occurrence: None)
  Receive Date: 20070307
  Receipt Date: 20061213
  Transmission Date: 20070707
  Serious: No
  Sender: FDA-Public Use
  Company Number: US-GLAXOSMITHKLINE-A0631460A

PATIENT
  Sex: Female

DRUGS (2)
  1. REQUIP [Suspect]
     Indication: PERIODIC LIMB MOVEMENT DISORDER
     Dosage: 1MG PER DAY
     Route: 048
     Dates: start: 20060901
  2. CONCURRENT MEDICATIONS [Concomitant]

REACTIONS (1)
  - BLOOD PRESSURE INCREASED [None]
